FAERS Safety Report 8111965-9 (Version None)
Quarter: 2012Q1

REPORT INFORMATION
  Report Type: 
  Country: None (occurrence: None)
  Receive Date: 20120203
  Receipt Date: 20111103
  Transmission Date: 20120608
  Serious: No
  Sender: FDA-Public Use
  Company Number: US-GLAXOSMITHKLINE-A0951884A

PATIENT
  Sex: Male

DRUGS (3)
  1. IBUPROFEN [Suspect]
  2. HEPARIN [Suspect]
  3. ARIXTRA [Suspect]
     Route: 065

REACTIONS (1)
  - HAEMATOMA [None]
